FAERS Safety Report 9905391 (Version 1)
Quarter: 2014Q1

REPORT INFORMATION
  Report Type: Spontaneous
  Country: US (occurrence: None)
  Receive Date: 20140211
  Receipt Date: 20140211
  Transmission Date: 20141002
  Serious: Yes (Other)
  Sender: FDA-Public Use
  Company Number: None

PATIENT
  Age: 62 Year
  Sex: Female
  Weight: 95.89 kg

DRUGS (2)
  1. MONTELUKAST [Suspect]
     Route: 048
     Dates: start: 20130211, end: 20130222
  2. MONTELUKAST [Suspect]
     Route: 048
     Dates: start: 20130211, end: 20130222

REACTIONS (2)
  - Dyspnoea [None]
  - Product substitution issue [None]
